FAERS Safety Report 8601390-6 (Version None)
Quarter: 2012Q3

REPORT INFORMATION
  Report Type: 
  Country: None (occurrence: None)
  Receive Date: 20120817
  Receipt Date: 20120810
  Transmission Date: 20120928
  Serious: Yes (Hospitalization)
  Sender: FDA-Public Use
  Company Number: NL-PFIZER INC-2012197452

PATIENT
  Sex: Female
  Weight: 85.4 kg

DRUGS (12)
  1. ESTROGEN NOS [Concomitant]
     Indication: BLOOD LUTEINISING HORMONE DECREASED
     Dosage: UNK
     Dates: start: 19960615
  2. DECA-DURABOLIN [Concomitant]
     Indication: ASTHENIA
     Dosage: UNK
     Dates: start: 19960715
  3. DIAZEPAM [Concomitant]
     Indication: DEPRESSION
     Dosage: UNK
     Dates: start: 19950701
  4. ESTROGEN NOS [Concomitant]
     Indication: BLOOD FOLLICLE STIMULATING HORMONE DECREASED
  5. LEVOTHYROXINE [Concomitant]
     Indication: PRIMARY HYPOTHYROIDISM
  6. CINNARIZINE [Concomitant]
     Dosage: UNK
     Dates: start: 19951012
  7. DIAZEPAM [Concomitant]
     Indication: INSOMNIA
  8. SALBUTAMOL [Concomitant]
     Dosage: UNK
     Dates: start: 19951012
  9. LEVOTHYROXINE [Concomitant]
     Indication: BLOOD THYROID STIMULATING HORMONE DECREASED
     Dosage: UNK
     Dates: start: 19930701
  10. GENOTROPIN [Suspect]
     Dosage: 0.2 MG, 7/WK
     Route: 058
     Dates: start: 20021211
  11. ESTROGEN NOS [Concomitant]
     Indication: HYPOGONADISM FEMALE
  12. DECA-DURABOLIN [Concomitant]
     Indication: FATIGUE

REACTIONS (1)
  - DIARRHOEA [None]
